FAERS Safety Report 10711593 (Version 4)
Quarter: 2017Q4

REPORT INFORMATION
  Report Type: Spontaneous
  Country: US (occurrence: US)
  Receive Date: 20150114
  Receipt Date: 20171219
  Transmission Date: 20180320
  Serious: Yes (Hospitalization, Other)
  Sender: FDA-Public Use
  Company Number: US-OTSUKA-US-2015-10098

PATIENT
  Age: 51 Year
  Sex: Male

DRUGS (5)
  1. ABILIFY [Suspect]
     Active Substance: ARIPIPRAZOLE
     Indication: DRUG TOLERANCE
     Dosage: 10 MG, QD
     Route: 048
     Dates: start: 201412
  2. ABILIFY [Suspect]
     Active Substance: ARIPIPRAZOLE
     Indication: DRUG TOLERANCE
     Dosage: 20 MG MILLIGRAM(S), QD (FOR 8 DAYS)
     Route: 048
     Dates: start: 201412
  3. REMERON [Concomitant]
     Active Substance: MIRTAZAPINE
     Indication: PRODUCT USED FOR UNKNOWN INDICATION
     Dosage: 30 MG, UNK
     Route: 065
  4. ABILIFY MAINTENA [Suspect]
     Active Substance: ARIPIPRAZOLE
     Indication: PSYCHOTIC DISORDER
     Dosage: 400 MG, UNK
     Route: 030
     Dates: start: 20141230
  5. MIRTAZAPINE. [Concomitant]
     Active Substance: MIRTAZAPINE
     Indication: PRODUCT USED FOR UNKNOWN INDICATION
     Dosage: 30 MG, UNK
     Route: 065

REACTIONS (6)
  - Off label use [Unknown]
  - Delirium [Recovered/Resolved]
  - Disorientation [Recovered/Resolved]
  - Psychotic disorder [Not Recovered/Not Resolved]
  - Drug ineffective [Unknown]
  - Hallucination [Recovered/Resolved]
